FAERS Safety Report 8379137-0 (Version None)
Quarter: 2012Q2

REPORT INFORMATION
  Report Type: 
  Country: None (occurrence: None)
  Receive Date: 20120523
  Receipt Date: 20110504
  Transmission Date: 20120825
  Serious: Yes (Hospitalization)
  Sender: FDA-Public Use
  Company Number: 163-21880-11032152

PATIENT
  Age: 64 Year
  Sex: Female

DRUGS (9)
  1. ASPIRIN [Concomitant]
  2. CALCIUM ASCORBATE (CALCIUM ASCORBATE) [Concomitant]
  3. CENTRUM SILVER (CENTRUM SILVER) [Concomitant]
  4. BIOTIN (BIOTIN) (ENTERIC-COATED TABLET) [Concomitant]
  5. GLIPIZIDE ER (GLIPIZIDE) [Concomitant]
  6. METFORMIN HCL [Concomitant]
  7. REVLIMID [Suspect]
     Indication: MYELODYSPLASTIC SYNDROME
     Dosage: 10 MG, DAILY X 21 DAYS, PO
     Route: 048
     Dates: start: 20110211, end: 20110408
  8. PROCHLORPERAZINE MALEATE (PROCHLORPERAZINE MALEATE) [Concomitant]
  9. METAMUCIL (METAMUCIL ^PROCTER + GAMBLE^) [Concomitant]

REACTIONS (2)
  - WHITE BLOOD CELL COUNT DECREASED [None]
  - DIVERTICULITIS [None]
